FAERS Safety Report 16390594 (Version 2)
Quarter: 2019Q2

REPORT INFORMATION
  Report Type: Report from Study
  Country: LB (occurrence: LB)
  Receive Date: 20190604
  Receipt Date: 20190607
  Transmission Date: 20190711
  Serious: Yes (Death, Life-Threatening)
  Sender: FDA-Public Use
  Company Number: LB-PFIZER INC-2019234125

PATIENT

DRUGS (3)
  1. ZOLEDRONIC ACID [Suspect]
     Active Substance: ZOLEDRONIC ACID
     Indication: HORMONE-REFRACTORY PROSTATE CANCER
     Dosage: 4 MG, CYCLIC (ON DAY 1,15 MIN INFUSION IN A 28-DAY CYCLE)
     Route: 042
  2. DOCETAXEL. [Suspect]
     Active Substance: DOCETAXEL
     Indication: HORMONE-REFRACTORY PROSTATE CANCER
     Dosage: 25 MG/M2, CYCLIC  (ON DAYS 1, 8, AND 15, IN A 28-DAY CYCLE)
     Route: 042
  3. ESTRAMUSTINE PHOSPHATE [Suspect]
     Active Substance: ESTRAMUSTINE PHOSPHATE
     Indication: HORMONE-REFRACTORY PROSTATE CANCER
     Dosage: 140 MG, 2X/DAY (ON DAYS 1 TO 21, IN A 28-DAY CYCLE)
     Route: 048

REACTIONS (2)
  - Stevens-Johnson syndrome [Fatal]
  - Hepatotoxicity [Fatal]
